FAERS Safety Report 5606022-7 (Version None)
Quarter: 2008Q1

REPORT INFORMATION
  Report Type: 
  Country: None (occurrence: None)
  Receive Date: 20080123
  Receipt Date: 20080123
  Transmission Date: 20080703
  Serious: Yes (Other)
  Sender: FDA-Public Use
  Company Number: None

PATIENT
  Age: 42 Year
  Sex: Female
  Weight: 103.4201 kg

DRUGS (1)
  1. PROAIR HFA [Suspect]
     Indication: BRONCHITIS CHRONIC
     Dosage: 2 PUFFS EVERY 4 TO 6 HOURS INHAL
     Route: 055
     Dates: start: 20071118, end: 20080120

REACTIONS (3)
  - DRUG INEFFECTIVE [None]
  - DYSPNOEA [None]
  - PHARMACEUTICAL PRODUCT COMPLAINT [None]
